FAERS Safety Report 7956020-3 (Version None)
Quarter: 2011Q4

REPORT INFORMATION
  Report Type: 
  Country: None (occurrence: None)
  Receive Date: 20111205
  Receipt Date: 20111129
  Transmission Date: 20120403
  Serious: No
  Sender: FDA-Public Use
  Company Number: US-PFIZER INC-2011291130

PATIENT
  Sex: Female

DRUGS (2)
  1. TIKOSYN [Concomitant]
     Indication: ATRIAL FIBRILLATION
     Dosage: UNK
  2. TOVIAZ [Suspect]
     Dosage: 4 MG, UNK

REACTIONS (3)
  - DIZZINESS [None]
  - FEAR OF FALLING [None]
  - DYSURIA [None]
